FAERS Safety Report 9143183 (Version 1)
Quarter: 2013Q1

REPORT INFORMATION
  Report Type: Spontaneous
  Country: US (occurrence: US)
  Receive Date: 20130306
  Receipt Date: 20130306
  Transmission Date: 20140127
  Serious: No
  Sender: FDA-Public Use
  Company Number: US-ENDO PHARMACEUTICALS INC.-OPER20110055

PATIENT
  Age: 58 Year
  Sex: Male

DRUGS (2)
  1. OPANA ER 30MG [Suspect]
     Indication: BACK PAIN
     Route: 048
  2. OXYCODONE/APAP [Suspect]
     Indication: BACK PAIN
     Dosage: 10/325 MG
     Route: 048

REACTIONS (4)
  - Nephrolithiasis [Not Recovered/Not Resolved]
  - Burning sensation [Not Recovered/Not Resolved]
  - Paraesthesia [Not Recovered/Not Resolved]
  - Drug ineffective [Not Recovered/Not Resolved]
